FAERS Safety Report 8571356-3 (Version None)
Quarter: 2012Q3

REPORT INFORMATION
  Report Type: 
  Country: None (occurrence: None)
  Receive Date: 20120806
  Receipt Date: 20120723
  Transmission Date: 20120928
  Serious: No
  Sender: FDA-Public Use
  Company Number: US-ASTRAZENECA-2012SE42168

PATIENT
  Age: 88 Year
  Sex: Female
  Weight: 63.5 kg

DRUGS (5)
  1. METOPROLOL TARTRATE [Concomitant]
  2. SEROQUEL [Suspect]
     Indication: INSOMNIA
     Dosage: AT NIGHT
     Route: 048
  3. SEROQUEL [Suspect]
     Indication: DEPRESSION
     Dosage: AT NIGHT
     Route: 048
  4. OMEPRAZOLE [Concomitant]
     Indication: GASTRIC DISORDER
  5. TRAZODONE HYDROCHLORIDE [Concomitant]

REACTIONS (4)
  - DECREASED APPETITE [None]
  - CIRCUMSTANCE OR INFORMATION CAPABLE OF LEADING TO MEDICATION ERROR [None]
  - OVERWEIGHT [None]
  - INTENTIONAL DRUG MISUSE [None]
